FAERS Safety Report 8089604-5 (Version None)
Quarter: 2012Q1

REPORT INFORMATION
  Report Type: 
  Country: None (occurrence: None)
  Receive Date: 20120128
  Receipt Date: 20110625
  Transmission Date: 20120608
  Serious: No
  Sender: FDA-Public Use
  Company Number: US-ABBOTT-11P-163-0727139-00

PATIENT
  Age: 38 Year
  Sex: Male

DRUGS (4)
  1. NEXIUM [Concomitant]
     Indication: GASTRIC DISORDER
  2. SINGULAIR [Concomitant]
     Indication: HYPERSENSITIVITY
     Dosage: 10MG DAILY
  3. HUMIRA [Suspect]
     Indication: CROHN'S DISEASE
     Dosage: LOADING DOSE 160MG
     Dates: start: 20110518, end: 20110519
  4. AMBIEN [Concomitant]
     Indication: INSOMNIA
     Dosage: AT HS

REACTIONS (4)
  - INJECTION SITE SWELLING [None]
  - FATIGUE [None]
  - MALAISE [None]
  - NAUSEA [None]
